FAERS Safety Report 10760594 (Version 2)
Quarter: 2015Q3

REPORT INFORMATION
  Report Type: Spontaneous
  Country: FR (occurrence: None)
  Receive Date: 20150202
  Receipt Date: 20150716
  Transmission Date: 20151125
  Serious: Yes (Death, Hospitalization)
  Sender: FDA-Public Use
  Company Number: FR-H14001-15-00141

PATIENT
  Age: 65 Year
  Sex: Female
  Weight: 80 kg

DRUGS (14)
  1. TAZOCILLINE (PIP/TAZO) (PIPERACILLIN SODIUM, TAZOBACTAM SODIUM)? [Concomitant]
  2. CHONDROSULF (CHONDROITIN SULFATE SODIUM) [Concomitant]
     Active Substance: CHONDROITIN SULFATE (CHICKEN)
  3. DELURSAN (URSODEOXYCHOLIC ACID) TABLET [Concomitant]
     Active Substance: URSODIOL
  4. HEPARIN [Concomitant]
     Active Substance: HEPARIN SODIUM
  5. VANCOMYCIN (VANCOMYCIN) [Concomitant]
     Active Substance: VANCOMYCIN
  6. ZOCOR [Concomitant]
     Active Substance: SIMVASTATIN
  7. ZOVIRAX [Concomitant]
     Active Substance: ACYCLOVIR
  8. CASPOFUNGIN (CASPOFUNGIN) [Concomitant]
  9. NORADRENALINE (NOREPINEPHRINE) [Concomitant]
  10. CERUBIDIN [Suspect]
     Active Substance: DAUNORUBICIN
     Indication: ACUTE MYELOID LEUKAEMIA
     Route: 041
     Dates: start: 20100507, end: 20100509
  11. GEMTUZUMAB OZOGAMICIN [Suspect]
     Active Substance: GEMTUZUMAB OZOGAMICIN
     Indication: ACUTE MYELOID LEUKAEMIA
     Dosage: 3 MG/2, ON DAY 1, 4 AND 7, INTRAVENOUS DRIP?
     Route: 041
     Dates: start: 20100507, end: 20100513
  12. NOXAFIL [Concomitant]
     Active Substance: POSACONAZOLE
  13. CYTARABINE (CYTARABINE) [Suspect]
     Active Substance: CYTARABINE
     Indication: ACUTE MYELOID LEUKAEMIA
     Route: 041
     Dates: start: 20100507, end: 20100513
  14. TIENAM (PRIMAXIN) (IMIPENEM, CILASTATIN SODIUM) [Concomitant]

REACTIONS (22)
  - Fall [None]
  - Haemoglobin decreased [None]
  - Shock haemorrhagic [None]
  - Oedema peripheral [None]
  - Renal failure [None]
  - Shock [None]
  - Haematuria [None]
  - Tachycardia [None]
  - Rhabdomyolysis [None]
  - Acidosis [None]
  - Febrile bone marrow aplasia [None]
  - Compartment syndrome [None]
  - Asthenia [None]
  - Pruritus [None]
  - Somnolence [None]
  - Multi-organ failure [None]
  - Haemorrhage [None]
  - Hepatocellular injury [None]
  - Sepsis [None]
  - Hypothyroidism [None]
  - Peripheral coldness [None]
  - Hyperkalaemia [None]

NARRATIVE: CASE EVENT DATE: 201005
